FAERS Safety Report 8884613 (Version 1)
Quarter: 2012Q4

REPORT INFORMATION
  Report Type: 
  Country: BR (occurrence: BR)
  Receive Date: 20121102
  Receipt Date: 20121102
  Transmission Date: 20130627
  Serious: Yes (Other)
  Sender: FDA-Public Use
  Company Number: BR-PFIZER INC-2012263700

PATIENT
  Age: 65 Year
  Sex: Female
  Weight: 82 kg

DRUGS (10)
  1. XALATAN [Suspect]
     Dosage: one drop in each eye, 1x/day
     Route: 047
     Dates: start: 20061107, end: 20121010
  2. BACTRIM [Concomitant]
     Indication: INFECTION PROPHYLAXIS
     Dosage: UNK
  3. AMLODIPINE BESILATE [Concomitant]
     Indication: PRESSURE BLOOD INCREASED
     Dosage: UNK
  4. FUROSEMIDE [Concomitant]
     Dosage: strength 40 mg, 0.5 UNK, 1x/day
  5. THALIDOMIDE [Concomitant]
     Indication: INFECTION
     Dosage: UNK
  6. ALLOPURINOL [Concomitant]
     Dosage: 100 mg, 2x/day at night
  7. ENOXAPARINE [Concomitant]
     Dosage: strength 40 mg, syringe
  8. OMEPRAZOLE [Concomitant]
     Dosage: strength 200mg, on Wednesdays, 5 before breakfast, 5 before lunch
  9. INSULIN [Concomitant]
     Indication: DIABETES
     Dosage: UNK
  10. METFORMIN [Concomitant]
     Indication: DIABETES
     Dosage: 850, 3x/daily

REACTIONS (7)
  - Plasma cell myeloma [Unknown]
  - Pneumonia [Recovered/Resolved]
  - Intraocular pressure test abnormal [Unknown]
  - Eye pain [Unknown]
  - Photophobia [Unknown]
  - Anaemia [Unknown]
  - Urinary incontinence [Unknown]
